FAERS Safety Report 14749358 (Version 1)
Quarter: 2018Q2

REPORT INFORMATION
  Report Type: Spontaneous
  Country: US (occurrence: US)
  Receive Date: 20180411
  Receipt Date: 20180411
  Transmission Date: 20180711
  Serious: No
  Sender: FDA-Public Use
  Company Number: US-AMGEN-USASP2018028205

PATIENT
  Age: 79 Year
  Sex: Female
  Weight: 78.46 kg

DRUGS (6)
  1. OMEPRAZOLE. [Concomitant]
     Active Substance: OMEPRAZOLE
     Dosage: 20 MG, QD
     Route: 048
  2. PROLIA [Suspect]
     Active Substance: DENOSUMAB
     Indication: OSTEOPOROSIS POSTMENOPAUSAL
     Dosage: 60 MG/ML, Q6MO
     Route: 058
     Dates: start: 20180205, end: 20180205
  3. AMLODIPINE BESYLATE. [Concomitant]
     Active Substance: AMLODIPINE BESYLATE
     Dosage: 5 MG, QD
     Route: 048
  4. ATENOLOL. [Concomitant]
     Active Substance: ATENOLOL
     Dosage: 50 MG, QD
     Route: 048
  5. GLUCOSAMINE HCL [Concomitant]
     Active Substance: GLUCOSAMINE
     Dosage: UNK UNK, BID (AS NECESSARY)
  6. PROBIOTIC [Concomitant]
     Active Substance: PROBIOTICS NOS
     Dosage: UNK UNK, QD

REACTIONS (6)
  - Gait disturbance [Recovering/Resolving]
  - Myalgia [Unknown]
  - Pain in extremity [Recovering/Resolving]
  - Arthralgia [Recovering/Resolving]
  - Back pain [Recovering/Resolving]
  - Weight decreased [Unknown]

NARRATIVE: CASE EVENT DATE: 201802
